FAERS Safety Report 13412013 (Version 3)
Quarter: 2024Q2

REPORT INFORMATION
  Report Type: Spontaneous
  Country: US (occurrence: US)
  Receive Date: 20170406
  Receipt Date: 20240509
  Transmission Date: 20240716
  Serious: No
  Sender: FDA-Public Use
  Company Number: US-JNJFOC-20170317017

PATIENT
  Sex: Male

DRUGS (3)
  1. RISPERDAL [Suspect]
     Active Substance: RISPERIDONE
     Indication: Psychotic disorder
     Dosage: IN VARYING DOSES OF 0.5 MG, 1 MG, 2 MG AND 3 MG
     Route: 048
     Dates: start: 20041115, end: 20050326
  2. RISPERDAL [Suspect]
     Active Substance: RISPERIDONE
     Dosage: IN VARYING DOSES OF 0.5 MG, 1 MG, 2 MG AND 3 MG
     Route: 048
     Dates: start: 20060416, end: 20080311
  3. RISPERIDONE [Suspect]
     Active Substance: RISPERIDONE
     Indication: Psychotic disorder
     Dosage: IN VARYING DOSES OF 1 MG AND 2 MG
     Route: 065
     Dates: start: 20041115, end: 20050111

REACTIONS (2)
  - Emotional disorder [Unknown]
  - Gynaecomastia [Unknown]
